FAERS Safety Report 4635014-X (Version None)
Quarter: 2005Q2

REPORT INFORMATION
  Report Type: 
  Country: None (occurrence: None)
  Receive Date: 20050414
  Receipt Date: 20050125
  Transmission Date: 20051028
  Serious: Yes (Hospitalization)
  Sender: FDA-Public Use
  Company Number: PHNU2005DE00708

PATIENT
  Sex: Female

DRUGS (2)
  1. ESIDRIX [Suspect]
  2. ENALAPRIL [Suspect]

REACTIONS (2)
  - IMPAIRED HEALING [None]
  - SKIN ULCER [None]
